FAERS Safety Report 12680102 (Version 1)
Quarter: 2016Q3

REPORT INFORMATION
  Report Type: Spontaneous
  Country: US (occurrence: US)
  Receive Date: 20160824
  Receipt Date: 20160824
  Transmission Date: 20161109
  Serious: Yes (Other)
  Sender: FDA-Public Use
  Company Number: US-FRI-1000083654

PATIENT
  Age: 43 Year
  Sex: Female

DRUGS (2)
  1. LEXAPRO [Suspect]
     Active Substance: ESCITALOPRAM OXALATE
     Indication: ANXIETY
  2. REXULTI [Suspect]
     Active Substance: BREXPIPRAZOLE

REACTIONS (5)
  - Unevaluable event [Unknown]
  - Intentional self-injury [Unknown]
  - Morbid thoughts [Unknown]
  - Depression [Not Recovered/Not Resolved]
  - Suicidal behaviour [Unknown]

NARRATIVE: CASE EVENT DATE: 20160313
